FAERS Safety Report 8078367-5 (Version None)
Quarter: 2012Q1

REPORT INFORMATION
  Report Type: 
  Country: None (occurrence: None)
  Receive Date: 20120123
  Receipt Date: 20120109
  Transmission Date: 20120608
  Serious: Yes (Death, Life-Threatening, Hospitalization, Other)
  Sender: FDA-Public Use
  Company Number: 2012MA000365

PATIENT
  Sex: Female

DRUGS (11)
  1. TRIAMTERENE [Concomitant]
  2. AMBIEN [Concomitant]
  3. LAXATIVES [Concomitant]
  4. COUMADIN [Concomitant]
  5. DIGOXIN [Suspect]
     Dosage: 0.125 MG; QD; PO
     Route: 048
     Dates: start: 20061027, end: 20070322
  6. LOVENOX [Concomitant]
  7. AMITRIPTYLINE HCL [Concomitant]
  8. CELEBREX [Concomitant]
  9. HYDROCODONE BITARTRATE [Concomitant]
  10. HYDROCHLOROTHIAZIDE [Concomitant]
  11. LISINOPRIL [Concomitant]

REACTIONS (29)
  - FEMORAL NECK FRACTURE [None]
  - URINARY INCONTINENCE [None]
  - LEFT VENTRICULAR HYPERTROPHY [None]
  - ATRIAL FIBRILLATION [None]
  - CARDIAC FAILURE CONGESTIVE [None]
  - TRICUSPID VALVE INCOMPETENCE [None]
  - INSOMNIA [None]
  - APPENDICECTOMY [None]
  - HYSTERECTOMY [None]
  - CONSTIPATION [None]
  - INTESTINAL OBSTRUCTION [None]
  - HYPOVOLAEMIA [None]
  - FAECALOMA [None]
  - DEHYDRATION [None]
  - MITRAL VALVE INCOMPETENCE [None]
  - HYPERTENSION [None]
  - HIP ARTHROPLASTY [None]
  - VOMITING [None]
  - ABDOMINAL PAIN [None]
  - CARDIAC PACEMAKER INSERTION [None]
  - CARDIO-RESPIRATORY ARREST [None]
  - SICK SINUS SYNDROME [None]
  - NAUSEA [None]
  - PAIN [None]
  - BRADYCARDIA [None]
  - DEPRESSION [None]
  - AORTIC VALVE INCOMPETENCE [None]
  - SCOLIOSIS [None]
  - BACK PAIN [None]
